FAERS Safety Report 8874435 (Version 1)
Quarter: 2012Q4

REPORT INFORMATION
  Report Type: 
  Country: US (occurrence: US)
  Receive Date: 20121023
  Receipt Date: 20121023
  Transmission Date: 20130627
  Serious: Yes (Disabling, Other)
  Sender: FDA-Public Use
  Company Number: US-PFIZER INC-2012260532

PATIENT
  Age: 47 Year
  Sex: Male
  Weight: 92.52 kg

DRUGS (3)
  1. VIAGRA [Suspect]
     Dosage: UNK
     Route: 048
     Dates: start: 2004
  2. TAMSULOSIN HYDROCHLORIDE [Concomitant]
     Indication: PROSTATIC DISORDER
     Dosage: 4.5 mg, daily
  3. NORVASC [Concomitant]
     Indication: HYPERTENSION
     Dosage: 5 mg, daily in the morning

REACTIONS (3)
  - Fibromyalgia [Unknown]
  - Limb injury [Unknown]
  - Depression [Unknown]
